FAERS Safety Report 8468033 (Version 5)
Quarter: 2013Q2

REPORT INFORMATION
  Report Type: Report from Study
  Country: DE (occurrence: DE)
  Receive Date: 20120320
  Receipt Date: 20130412
  Transmission Date: 20140414
  Serious: Yes (Hospitalization)
  Sender: FDA-Public Use
  Company Number: DE-UCBSA-053422

PATIENT
  Sex: Female
  Weight: 93 kg

DRUGS (19)
  1. CERTOLIZUMAB PEGOL [Suspect]
     Indication: RHEUMATOID ARTHRITIS
     Dosage: NO OF DOSES RECEIVED-32
     Route: 058
     Dates: start: 20101111, end: 20121024
  2. SIMVASTATIN [Concomitant]
     Indication: HYPERLIPIDAEMIA
     Dates: start: 200707
  3. PREDNISOLONE [Concomitant]
     Indication: RHEUMATOID ARTHRITIS
     Route: 048
     Dates: start: 201010, end: 20101206
  4. PREDNISOLONE [Concomitant]
     Indication: RHEUMATOID ARTHRITIS
     Dosage: 7.5MG,1.25 MG, ONCE DAILY
     Dates: start: 20101207, end: 20101215
  5. PREDNISOLONE [Concomitant]
     Indication: RHEUMATOID ARTHRITIS
     Dates: start: 20101215, end: 201104
  6. PREDNISOLONE [Concomitant]
     Indication: RHEUMATOID ARTHRITIS
     Dates: start: 201104, end: 201106
  7. PREDNISOLONE [Concomitant]
     Indication: RHEUMATOID ARTHRITIS
     Dates: start: 201106, end: 201110
  8. PREDNISOLONE [Concomitant]
     Indication: RHEUMATOID ARTHRITIS
     Dates: start: 201110
  9. GELOMYRTOL [Concomitant]
     Indication: NASOPHARYNGITIS
     Dates: start: 20120202, end: 20120204
  10. ACC [Concomitant]
     Indication: NASOPHARYNGITIS
     Dates: start: 20120202, end: 20120204
  11. PARACETAMOL [Concomitant]
     Indication: NASOPHARYNGITIS
     Dates: start: 20120202, end: 20120204
  12. DEKRISTOL [Concomitant]
     Indication: OSTEOPOROSIS PROPHYLAXIS
     Dosage: 20000 IU-Q2S
     Dates: start: 200906
  13. THYROXIN [Concomitant]
     Indication: THYROIDECTOMY
  14. MTX [Concomitant]
     Indication: RHEUMATOID ARTHRITIS
     Dosage: 15 MG SUFFICIENT QUANTITY (QS)
     Dates: start: 200910
  15. LEDERFOLAT [Concomitant]
     Indication: RHEUMATOID ARTHRITIS
     Dosage: 5 MG SUFFICIENT QUANTITY (QS)
     Dates: start: 201001
  16. DICLOFENAC [Concomitant]
     Indication: RHEUMATOID ARTHRITIS
     Dates: start: 201010
  17. RAMIPRIL [Concomitant]
     Indication: HYPERTENSION
     Dates: start: 201202
  18. BISOPROLOL [Concomitant]
     Indication: HYPERTENSION
     Dates: start: 201202
  19. RAMIPRIL/HYDROCHLOROTHIAZIDE [Concomitant]
     Indication: HYPERTENSION
     Dosage: 5/12.5 MG
     Dates: start: 201205

REACTIONS (2)
  - Dermatitis allergic [Recovered/Resolved]
  - Pneumonia [Recovered/Resolved]
